FAERS Safety Report 25161655 (Version 1)
Quarter: 2025Q2

REPORT INFORMATION
  Report Type: Report from Study
  Country: TW (occurrence: TW)
  Receive Date: 20250404
  Receipt Date: 20250404
  Transmission Date: 20250716
  Serious: Yes (Hospitalization, Other)
  Sender: EXELIXIS
  Company Number: TW-KOREA IPSEN Pharma-2023-24019

PATIENT
  Age: 60 Year
  Sex: Female

DRUGS (2)
  1. CABOMETYX [Suspect]
     Active Substance: CABOZANTINIB S-MALATE
     Indication: Thyroid cancer
     Dosage: 60 MG, 1 TIME(S) PER DAY
     Route: 048
     Dates: start: 20230428
  2. NEXAVAR [Suspect]
     Active Substance: SORAFENIB
     Indication: Product used for unknown indication

REACTIONS (10)
  - Peripheral vascular disorder [Not Recovered/Not Resolved]
  - Thrombosis [Not Recovered/Not Resolved]
  - White blood cell count decreased [Not Recovered/Not Resolved]
  - Diarrhoea [Not Recovered/Not Resolved]
  - Blood albumin decreased [Not Recovered/Not Resolved]
  - Blood calcium decreased [Not Recovered/Not Resolved]
  - Adverse event [Unknown]
  - Muscle spasms [Recovering/Resolving]
  - White blood cell count decreased [Recovering/Resolving]
  - Pain [Recovering/Resolving]

NARRATIVE: CASE EVENT DATE: 20241111
